FAERS Safety Report 11002212 (Version 2)
Quarter: 2015Q3

REPORT INFORMATION
  Report Type: Spontaneous
  Country: US (occurrence: US)
  Receive Date: 20150408
  Receipt Date: 20150928
  Transmission Date: 20151125
  Serious: Yes (Hospitalization)
  Sender: FDA-Public Use
  Company Number: US-BAYER-2015-103602

PATIENT
  Age: 18 Year
  Sex: Female

DRUGS (7)
  1. SAFYRAL [Suspect]
     Active Substance: DROSPIRENONE\ETHINYL ESTRADIOL\LEVOMEFOLATE CALCIUM
     Dosage: UNK
     Dates: start: 200801, end: 20121101
  2. OCELLA [Suspect]
     Active Substance: DROSPIRENONE\ETHINYL ESTRADIOL
     Dosage: UNK
     Dates: start: 200801, end: 20121101
  3. YASMIN [Suspect]
     Active Substance: DROSPIRENONE\ETHINYL ESTRADIOL
     Dosage: UNK
     Dates: start: 200801, end: 20121101
  4. BEYAZ [Suspect]
     Active Substance: DROSPIRENONE\ETHINYL ESTRADIOL\LEVOMEFOLATE CALCIUM
     Dosage: UNK
     Dates: start: 200801, end: 20121101
  5. GIANVI [Suspect]
     Active Substance: DROSPIRENONE\ETHINYL ESTRADIOL
     Dosage: UNK
     Dates: start: 200801, end: 20121101
  6. SERTRALINE [Concomitant]
     Active Substance: SERTRALINE HYDROCHLORIDE
  7. YAZ [Suspect]
     Active Substance: DROSPIRENONE\ETHINYL ESTRADIOL
     Indication: DYSMENORRHOEA
     Dosage: UNK
     Dates: start: 200801, end: 20121101

REACTIONS (2)
  - Pulmonary embolism [None]
  - Injury [None]

NARRATIVE: CASE EVENT DATE: 20121001
